FAERS Safety Report 4367258-9 (Version None)
Quarter: 2004Q2

REPORT INFORMATION
  Report Type: 
  Country: None (occurrence: None)
  Receive Date: 20040524
  Receipt Date: 20040517
  Transmission Date: 20050107
  Serious: Yes (Other)
  Sender: FDA-Public Use
  Company Number: 2004213762US

PATIENT
  Sex: Male

DRUGS (3)
  1. BEXTRA [Suspect]
     Dosage: 20 MG, QD
  2. IMMUNOGLOBULIN HUMAN NORMAL [Concomitant]
  3. HYDRODIURIL [Concomitant]

REACTIONS (2)
  - HYPERTENSIVE CRISIS [None]
  - HYPONATRAEMIA [None]
